FAERS Safety Report 25387497 (Version 3)
Quarter: 2025Q2

REPORT INFORMATION
  Report Type: Spontaneous
  Country: AR (occurrence: AR)
  Receive Date: 20250602
  Receipt Date: 20250610
  Transmission Date: 20250716
  Serious: Yes (Death, Hospitalization, Other)
  Sender: BOEHRINGER INGELHEIM
  Company Number: AR-BoehringerIngelheim-2025-BI-073933

PATIENT
  Age: 75 Year
  Sex: Male
  Weight: 77 kg

DRUGS (1)
  1. EMPAGLIFLOZIN\METFORMIN HYDROCHLORIDE [Suspect]
     Active Substance: EMPAGLIFLOZIN\METFORMIN HYDROCHLORIDE
     Indication: Diabetes mellitus

REACTIONS (3)
  - Pneumonia [Fatal]
  - Renal failure [Fatal]
  - Gastrointestinal neoplasm [Recovered/Resolved with Sequelae]

NARRATIVE: CASE EVENT DATE: 20250521
